FAERS Safety Report 8530193-6 (Version None)
Quarter: 2012Q3

REPORT INFORMATION
  Report Type: 
  Country: None (occurrence: None)
  Receive Date: 20120723
  Receipt Date: 20120719
  Transmission Date: 20120928
  Serious: Yes (Other)
  Sender: FDA-Public Use
  Company Number: PHFR2012GB003627

PATIENT
  Sex: Female
  Weight: 73 kg

DRUGS (5)
  1. LEVOTHYROXINE SODIUM [Concomitant]
     Dosage: 100 MG, UNK
  2. METFORMIN HYDROCHLORIDE [Concomitant]
     Dosage: 500 MG, UNK
     Route: 048
  3. SIMVASTATIN [Concomitant]
     Dosage: 20 MG, UNK
     Route: 048
  4. CABERGOLINE [Concomitant]
     Dosage: 1 MG, UNK
     Route: 048
  5. SANDOSTATIN LAR [Suspect]
     Dosage: 30 MG, UNK

REACTIONS (2)
  - DRUG ADMINISTRATION ERROR [None]
  - SYRINGE ISSUE [None]
